FAERS Safety Report 7562470-X (Version None)
Quarter: 2011Q2

REPORT INFORMATION
  Report Type: 
  Country: None (occurrence: None)
  Receive Date: 20110622
  Receipt Date: 20110608
  Transmission Date: 20111010
  Serious: Yes (Hospitalization)
  Sender: FDA-Public Use
  Company Number: LV-RANBAXY-2011RR-45360

PATIENT
  Age: 79 Year
  Sex: Female
  Weight: 71 kg

DRUGS (1)
  1. MIDAZOLAM HYDROCHLORIDE [Suspect]
     Indication: PREMEDICATION
     Dosage: 2 MG, UNK
     Route: 042
     Dates: start: 20110411

REACTIONS (1)
  - HEADACHE [None]
